FAERS Safety Report 18033693 (Version 27)
Quarter: 2025Q2

REPORT INFORMATION
  Report Type: Spontaneous
  Country: US (occurrence: US)
  Receive Date: 20200717
  Receipt Date: 20250430
  Transmission Date: 20250717
  Serious: No
  Sender: PFIZER
  Company Number: US-PFIZER INC-2019325061

PATIENT
  Age: 78 Year
  Sex: Female
  Weight: 55.79 kg

DRUGS (6)
  1. PREMPRO [Suspect]
     Active Substance: ESTROGENS, CONJUGATED\MEDROXYPROGESTERONE ACETATE
     Indication: Menopausal symptoms
     Dosage: 1 DF, 1X/DAY
     Route: 048
     Dates: start: 2016
  2. PREMPRO [Suspect]
     Active Substance: ESTROGENS, CONJUGATED\MEDROXYPROGESTERONE ACETATE
     Indication: Bone disorder
     Dosage: 1 DF, 1X/DAY
     Route: 048
  3. PREMPRO [Suspect]
     Active Substance: ESTROGENS, CONJUGATED\MEDROXYPROGESTERONE ACETATE
     Indication: Osteoporosis
     Dosage: 1 DF, 1X/DAY
     Route: 048
     Dates: start: 20161030, end: 202110
  4. PREMPRO [Suspect]
     Active Substance: ESTROGENS, CONJUGATED\MEDROXYPROGESTERONE ACETATE
     Indication: Hormone replacement therapy
  5. ASPIRIN [Concomitant]
     Active Substance: ASPIRIN
  6. CALCIUM CITRATE\CHOLECALCIFEROL [Concomitant]
     Active Substance: CALCIUM CITRATE\CHOLECALCIFEROL
     Indication: Mineral supplementation
     Dosage: 2 DF, 1X/DAY (VITAMIN D 25MCG 1000 IU OF VITAMIN D3)
     Route: 048

REACTIONS (13)
  - Gait disturbance [Unknown]
  - Sitting disability [Unknown]
  - Bone loss [Unknown]
  - Arthralgia [Unknown]
  - Body height decreased [Unknown]
  - Bone disorder [Unknown]
  - Feeling abnormal [Unknown]
  - Osteoporosis [Unknown]
  - Condition aggravated [Unknown]
  - Hypertension [Unknown]
  - Asthenia [Unknown]
  - Weight decreased [Unknown]
  - Therapeutic response unexpected [Unknown]

NARRATIVE: CASE EVENT DATE: 20220509
